FAERS Safety Report 19789889 (Version 1)
Quarter: 2021Q3

REPORT INFORMATION
  Report Type: Spontaneous
  Country: CA (occurrence: CA)
  Receive Date: 20210904
  Receipt Date: 20210904
  Transmission Date: 20211014
  Serious: Yes (Other)
  Sender: FDA-Public Use
  Company Number: CA-TEVA-2021-CA-1947570

PATIENT
  Age: 6 Decade
  Sex: Male

DRUGS (2)
  1. PACLITAXEL. [Suspect]
     Active Substance: PACLITAXEL
     Indication: ANAPLASTIC LYMPHOMA KINASE GENE MUTATION
     Route: 065
  2. CARBOPLATIN. [Suspect]
     Active Substance: CARBOPLATIN
     Indication: ANAPLASTIC LYMPHOMA KINASE GENE MUTATION
     Route: 065

REACTIONS (2)
  - Hepatitis B [Unknown]
  - Neoplasm progression [Unknown]
